FAERS Safety Report 7875788-8 (Version None)
Quarter: 2011Q4

REPORT INFORMATION
  Report Type: 
  Country: None (occurrence: None)
  Receive Date: 20111031
  Receipt Date: 20111018
  Transmission Date: 20120403
  Serious: No
  Sender: FDA-Public Use
  Company Number: BR-ROCHE-803586

PATIENT
  Sex: Female
  Weight: 54 kg

DRUGS (2)
  1. ACTEMRA [Suspect]
     Indication: PRODUCT USED FOR UNKNOWN INDICATION
     Dosage: FREQUENCY: EVERY 28 DAYS
     Route: 042
  2. METHOTREXATE [Concomitant]

REACTIONS (1)
  - NO ADVERSE EVENT [None]
